FAERS Safety Report 8259881-6 (Version None)
Quarter: 2012Q2

REPORT INFORMATION
  Report Type: 
  Country: None (occurrence: None)
  Receive Date: 20120404
  Receipt Date: 20120213
  Transmission Date: 20120825
  Serious: Yes (Hospitalization)
  Sender: FDA-Public Use
  Company Number: KR-GLAXOSMITHKLINE-B0781447A

PATIENT
  Age: 30 Year
  Sex: Female

DRUGS (1)
  1. LAMICTAL [Suspect]
     Indication: NERVOUS SYSTEM DISORDER
     Route: 065
     Dates: start: 20120203, end: 20120212

REACTIONS (15)
  - RASH [None]
  - DIZZINESS [None]
  - SKIN EXFOLIATION [None]
  - NAUSEA [None]
  - CHILLS [None]
  - STEVENS-JOHNSON SYNDROME [None]
  - HEADACHE [None]
  - BLISTER [None]
  - MUCOSAL INFLAMMATION [None]
  - PYREXIA [None]
  - DRY EYE [None]
  - OCULAR HYPERAEMIA [None]
  - ERYTHEMA [None]
  - ONYCHOLYSIS [None]
  - LIP SWELLING [None]
